FAERS Safety Report 11382998 (Version 1)
Quarter: 2015Q3

REPORT INFORMATION
  Report Type: Spontaneous
  Country: US (occurrence: US)
  Receive Date: 20150814
  Receipt Date: 20150814
  Transmission Date: 20151125
  Serious: No
  Sender: FDA-Public Use
  Company Number: US-PFIZER INC-2015268002

PATIENT
  Age: 43 Year
  Sex: Female
  Weight: 101 kg

DRUGS (2)
  1. ACETAMINOPHEN W/HYDROCODONE [Suspect]
     Active Substance: ACETAMINOPHEN\HYDROCODONE
     Indication: PAIN
     Dosage: UNK
  2. ZITHROMAX [Suspect]
     Active Substance: AZITHROMYCIN DIHYDRATE
     Indication: SINUSITIS
     Dosage: UNK
     Dates: start: 201507

REACTIONS (6)
  - Nausea [Unknown]
  - Weight decreased [Unknown]
  - Pain [Unknown]
  - Gallbladder disorder [Unknown]
  - Dizziness [Unknown]
  - Gastritis [Unknown]
